FAERS Safety Report 6740212-5 (Version None)
Quarter: 2010Q2

REPORT INFORMATION
  Report Type: 
  Country: None (occurrence: None)
  Receive Date: 20100525
  Receipt Date: 20100514
  Transmission Date: 20101027
  Serious: Yes (Death)
  Sender: FDA-Public Use
  Company Number: B0601864A

PATIENT
  Age: 42 Year
  Sex: Male
  Weight: 84 kg

DRUGS (14)
  1. NICOTINE [Suspect]
     Indication: DRUG USE FOR UNKNOWN INDICATION
     Route: 062
  2. TRAMADOL HCL [Suspect]
  3. DIPHENHYDRAMINE [Suspect]
     Route: 065
  4. NICOTINE [Suspect]
     Route: 048
  5. PARACETAMOL [Suspect]
     Route: 065
  6. TOBACCO [Suspect]
  7. ZOPICLONE [Suspect]
  8. ALCOHOL [Suspect]
  9. UNKNOWN DRUG [Suspect]
  10. ZINC [Suspect]
  11. UNKNOWN DRUG [Suspect]
  12. ARSENIC [Suspect]
  13. UNKNOWN DRUG [Suspect]
  14. PHOSPHORIC ACID [Suspect]

REACTIONS (16)
  - ARTERIOSCLEROSIS [None]
  - BRAIN OEDEMA [None]
  - CARDIAC FAILURE [None]
  - CARDIOPULMONARY FAILURE [None]
  - COMPLETED SUICIDE [None]
  - DEPRESSED LEVEL OF CONSCIOUSNESS [None]
  - DRUG INTERACTION [None]
  - DRUG TOXICITY [None]
  - HYPERAEMIA [None]
  - ILL-DEFINED DISORDER [None]
  - MYOCARDIAL INFARCTION [None]
  - MYOCARDIAL ISCHAEMIA [None]
  - OEDEMA [None]
  - PETECHIAE [None]
  - PULMONARY CONGESTION [None]
  - PULMONARY OEDEMA [None]
